FAERS Safety Report 15664457 (Version 1)
Quarter: 2018Q4

REPORT INFORMATION
  Report Type: Spontaneous
  Country: US (occurrence: US)
  Receive Date: 20181127
  Receipt Date: 20181127
  Transmission Date: 20190205
  Serious: No
  Sender: FDA-Public Use
  Company Number: None

PATIENT
  Age: 50 Year
  Sex: Female
  Weight: 78.75 kg

DRUGS (1)
  1. AIMOVIG [Suspect]
     Active Substance: ERENUMAB-AOOE
     Indication: MIGRAINE PROPHYLAXIS
     Dates: start: 20180724, end: 20181022

REACTIONS (13)
  - Depression [None]
  - Decreased appetite [None]
  - Anxiety [None]
  - Loss of libido [None]
  - Palpitations [None]
  - Constipation [None]
  - Headache [None]
  - Dizziness [None]
  - Neck pain [None]
  - Photophobia [None]
  - Vision blurred [None]
  - Feeling abnormal [None]
  - Heat exhaustion [None]

NARRATIVE: CASE EVENT DATE: 20181022
